FAERS Safety Report 8163017-X (Version None)
Quarter: 2012Q1

REPORT INFORMATION
  Report Type: 
  Country: None (occurrence: None)
  Receive Date: 20120224
  Receipt Date: 20120221
  Transmission Date: 20120608
  Serious: Yes (Life-Threatening)
  Sender: FDA-Public Use
  Company Number: US-BAYER-2010-003239

PATIENT
  Age: 17 Year
  Sex: Female
  Weight: 53 kg

DRUGS (4)
  1. GARDASIL [Concomitant]
  2. FLEXERIL [Concomitant]
     Dosage: 10 MG, HS
     Route: 048
  3. YAZ [Suspect]
     Indication: CONTRACEPTION
     Dosage: UNK
     Dates: start: 20080101, end: 20081201
  4. YAZ [Suspect]
     Indication: MENSTRUATION IRREGULAR

REACTIONS (2)
  - PULMONARY EMBOLISM [None]
  - PAIN [None]
